FAERS Safety Report 4631015-6 (Version None)
Quarter: 2005Q2

REPORT INFORMATION
  Report Type: 
  Country: None (occurrence: None)
  Receive Date: 20050406
  Receipt Date: 20050406
  Transmission Date: 20051028
  Serious: Yes (Death)
  Sender: FDA-Public Use
  Company Number: None

PATIENT
  Age: 86 Year
  Sex: Female
  Weight: 57.9 kg

DRUGS (12)
  1. TARCEVA [Suspect]
     Indication: NON-SMALL CELL LUNG CANCER
     Dosage: 100 MG PO QD
     Route: 048
     Dates: start: 20050101, end: 20050215
  2. VERAPAMIL [Concomitant]
  3. ZYRTEC-D 12 HOUR [Concomitant]
  4. LIPITOR [Concomitant]
  5. DETROL [Concomitant]
  6. AVOPRO [Concomitant]
  7. CITRACAL [Concomitant]
  8. CALCIUM CITRATE + D [Concomitant]
  9. CALCIUM/MAGNESIUM SUPPLEMENT [Concomitant]
  10. IBUPROFEN [Concomitant]
  11. LIDEX [Concomitant]
  12. BACITRACIN [Concomitant]

REACTIONS (12)
  - ATRIAL FIBRILLATION [None]
  - CARDIAC FAILURE CONGESTIVE [None]
  - COMA [None]
  - COUGH [None]
  - DECREASED APPETITE [None]
  - DIARRHOEA [None]
  - MEDICAL DEVICE DISCOMFORT [None]
  - MYOCARDIAL INFARCTION [None]
  - MYOCARDIAL ISCHAEMIA [None]
  - PLEURAL EFFUSION [None]
  - RASH [None]
  - RESPIRATORY FAILURE [None]
